FAERS Safety Report 17695313 (Version 1)
Quarter: 2020Q2

REPORT INFORMATION
  Report Type: Spontaneous
  Country: US (occurrence: US)
  Receive Date: 20200422
  Receipt Date: 20200422
  Transmission Date: 20200714
  Serious: Yes (Life-Threatening, Hospitalization)
  Sender: FDA-Public Use
  Company Number: US-MEDICURE INC.-2083064

PATIENT
  Age: 68 Year
  Sex: Female

DRUGS (10)
  1. TICAGRELOR??PATIENT WAS LOADED WITH TICAGRELOR AND CANGRELOR, GIVEN TI [Concomitant]
     Route: 048
  2. ASPIRIN. [Concomitant]
     Active Substance: ASPIRIN
     Route: 048
  3. BIVALIRUDIN. [Concomitant]
     Active Substance: BIVALIRUDIN
  4. CLOPIDOGREL [Concomitant]
     Active Substance: CLOPIDOGREL BISULFATE
  5. CANGRELOR??PATIENT WAS LOADED WITH TICAGRELOR AND CANGRELOR, GIVEN TIR [Concomitant]
  6. HEPARIN SODIUM. [Concomitant]
     Active Substance: HEPARIN SODIUM
     Route: 042
  7. ARGATROBAN. [Concomitant]
     Active Substance: ARGATROBAN
  8. ATORVASTATIN CALCIUM. [Concomitant]
     Active Substance: ATORVASTATIN CALCIUM
     Route: 048
  9. AGGRASTAT [Suspect]
     Active Substance: TIROFIBAN HYDROCHLORIDE
     Indication: ANTIPLATELET THERAPY
     Route: 041
  10. WARFARIN SODIUM. [Concomitant]
     Active Substance: WARFARIN SODIUM

REACTIONS (1)
  - Thrombosis in device [Recovered/Resolved]
